FAERS Safety Report 10167422 (Version 1)
Quarter: 2014Q2

REPORT INFORMATION
  Report Type: Spontaneous
  Country: CH (occurrence: CH)
  Receive Date: 20140512
  Receipt Date: 20140512
  Transmission Date: 20141212
  Serious: Yes (Other)
  Sender: FDA-Public Use
  Company Number: CH-DSJP-DSE-2014-106923

PATIENT
  Sex: 0

DRUGS (4)
  1. OLMETEC 20 MG [Suspect]
     Indication: ESSENTIAL HYPERTENSION
     Dosage: 20 MG, QD
     Route: 048
  2. MINIRIN /00361902/ [Interacting]
     Indication: BLADDER IRRITATION
     Dosage: 0.2 MG, QD
     Route: 048
     Dates: start: 20110901, end: 20110913
  3. INDERAL [Concomitant]
     Indication: PRODUCT USED FOR UNKNOWN INDICATION
     Dosage: 20 MG, QD
     Route: 048
  4. MADOPAR [Concomitant]
     Indication: PRODUCT USED FOR UNKNOWN INDICATION
     Dosage: 375 MG, QD
     Route: 048

REACTIONS (1)
  - Hyponatraemia [Unknown]
